FAERS Safety Report 9390996 (Version 1)
Quarter: 2013Q3

REPORT INFORMATION
  Report Type: Spontaneous
  Country: FR (occurrence: FR)
  Receive Date: 20130709
  Receipt Date: 20130709
  Transmission Date: 20140515
  Serious: Yes (Life-Threatening)
  Sender: FDA-Public Use
  Company Number: FR-SHIRE-ALL1-2013-04201

PATIENT
  Age: 7 Year
  Sex: Male
  Weight: 28 kg

DRUGS (2)
  1. ELAPRASE [Suspect]
     Indication: MUCOPOLYSACCHARIDOSIS II
     Dosage: 30 MG, UNKNOWN (5 VIALS IN 100 ML OF SALINE SOLUTION)
     Route: 041
     Dates: start: 20130620
  2. CELESTENE                          /00008501/ [Concomitant]
     Indication: PREMEDICATION
     Dosage: UNK, UNKNOWN (THE DAY BEFORE AND SAME DAY OF INFUSION)
     Route: 065

REACTIONS (2)
  - Bronchospasm [Recovered/Resolved]
  - Infusion related reaction [Recovered/Resolved]
